FAERS Safety Report 25169772 (Version 2)
Quarter: 2025Q2

REPORT INFORMATION
  Report Type: Spontaneous
  Country: IT (occurrence: IT)
  Receive Date: 20250407
  Receipt Date: 20250430
  Transmission Date: 20250717
  Serious: Yes (Other)
  Sender: BAUSCH AND LOMB
  Company Number: IT-BAUSCH-BL-2025-004540

PATIENT
  Age: 37 Year
  Sex: Male

DRUGS (1)
  1. IMIQUIMOD [Suspect]
     Active Substance: IMIQUIMOD
     Indication: Actinic keratosis
     Route: 061

REACTIONS (1)
  - Hypersensitivity [Unknown]
